FAERS Safety Report 18229952 (Version 1)
Quarter: 2020Q3

REPORT INFORMATION
  Report Type: Not Available
  Country: None (occurrence: None)
  Receive Date: 20200904
  Receipt Date: 20200904
  Transmission Date: 20201103
  Serious: No
  Sender: FDA-Public Use
  Company Number: ROCHE-2671288

PATIENT

DRUGS (3)
  1. PACLITAXEL. [Suspect]
     Active Substance: PACLITAXEL
     Dosage: THERAPY FOR MORE THAN 2 CYCLE
  2. CAPECITABINE. [Suspect]
     Active Substance: CAPECITABINE
     Dosage: AFTER BREAKFAST AND DINNER; THERAPY FOR MORE THAN 2 CYCLE
  3. PACLITAXEL. [Suspect]
     Active Substance: PACLITAXEL
     Dosage: ON THE FIRST DAY OF EACH CHEMOTHERAPY, THE PATIENTS WERE GIVEN 75MG/M2 IVGTT FOR LESS THAN 60MIN. TH

REACTIONS (1)
  - Haematotoxicity [None]
